FAERS Safety Report 4686493-3 (Version None)
Quarter: 2005Q2

REPORT INFORMATION
  Report Type: 
  Country: None (occurrence: None)
  Receive Date: 20050609
  Receipt Date: 20050606
  Transmission Date: 20051028
  Serious: Yes (Death, Hospitalization)
  Sender: FDA-Public Use
  Company Number: PHRM2005FR01731

PATIENT
  Age: 25 Year
  Sex: Male

DRUGS (7)
  1. ZYPREXA [Suspect]
     Dosage: 10 MG, BID
     Route: 048
     Dates: start: 20041104, end: 20050415
  2. PARKINANE [Suspect]
     Dosage: 5 MG, BID
     Route: 048
     Dates: start: 20030414, end: 20050415
  3. LOXAPAC [Suspect]
     Dosage: 200 MG, TID
     Route: 048
     Dates: start: 20030418, end: 20050415
  4. LOXAPAC [Suspect]
     Dosage: 1 DF, PRN
     Route: 030
     Dates: start: 20041102
  5. RIVOTRIL [Suspect]
     Dosage: 1 MG, TID
     Route: 048
     Dates: start: 20040528, end: 20050415
  6. THERALENE [Suspect]
     Dosage: 30 MG, PRN
     Route: 048
     Dates: start: 20041106
  7. TEGRETOL [Suspect]
     Dosage: 400 MG, TID
     Route: 048
     Dates: start: 20050119, end: 20050415

REACTIONS (17)
  - ACUTE RESPIRATORY DISTRESS SYNDROME [None]
  - ASTHENIA [None]
  - BLOOD GLUCOSE INCREASED [None]
  - BLOOD OSMOLARITY INCREASED [None]
  - DIABETIC COMA [None]
  - DIFFUSE ALVEOLAR DAMAGE [None]
  - HAEMODYNAMIC INSTABILITY [None]
  - HYPOTHERMIA [None]
  - LOSS OF CONSCIOUSNESS [None]
  - METABOLIC ACIDOSIS [None]
  - NEUROLOGICAL SYMPTOM [None]
  - OXYGEN SATURATION DECREASED [None]
  - PNEUMONIA ASPIRATION [None]
  - RENAL FAILURE [None]
  - SOMNOLENCE [None]
  - URINE KETONE BODY PRESENT [None]
  - VOMITING [None]
